FAERS Safety Report 17547729 (Version 4)
Quarter: 2020Q3

REPORT INFORMATION
  Report Type: Report from Study
  Country: GB (occurrence: GB)
  Receive Date: 20200316
  Receipt Date: 20200806
  Transmission Date: 20201102
  Serious: Yes (Other)
  Sender: FDA-Public Use
  Company Number: GB-VERTEX PHARMACEUTICALS-2020-005151

PATIENT
  Age: 26 Year
  Sex: Female
  Weight: 150 kg

DRUGS (20)
  1. BRICANYL [Concomitant]
     Active Substance: TERBUTALINE SULFATE
     Indication: CYSTIC FIBROSIS LUNG
     Dosage: 2 PUFFS, PRN
     Dates: start: 20001005
  2. VITAMIN E [Concomitant]
     Active Substance: .ALPHA.-TOCOPHEROL
     Indication: PANCREATIC FAILURE
     Dosage: 150 IU, QD
     Route: 048
     Dates: start: 19940617
  3. NEXPLANON [Concomitant]
     Active Substance: ETONOGESTREL
     Dosage: 68 MG
     Route: 058
     Dates: start: 201901
  4. VX?445/VX?661/VX?770 [Suspect]
     Active Substance: ELEXACAFTOR\IVACAFTOR\TEZACAFTOR
     Indication: CYSTIC FIBROSIS
     Dosage: 200MG QD, 100 MG QD, 150 MG BID
     Route: 048
     Dates: start: 20200120, end: 20200306
  5. MENADIOL [Concomitant]
     Active Substance: MENADIOL
     Dosage: 10 MG, QD
  6. RANITIDINE. [Concomitant]
     Active Substance: RANITIDINE
     Indication: GASTROOESOPHAGEAL REFLUX DISEASE
     Dosage: 150 MG, BID
     Route: 048
     Dates: start: 2018
  7. CIPROFLOXACIN [CIPROFLOXACIN HYDROCHLORIDE] [Concomitant]
     Active Substance: CIPROFLOXACIN HYDROCHLORIDE
     Indication: PULMONARY FUNCTION TEST DECREASED
     Dosage: 750 MG, BID
     Route: 048
     Dates: start: 20200520
  8. PROMIXIN [COLISTIMETHATE SODIUM] [Concomitant]
     Active Substance: COLISTIMETHATE SODIUM
     Indication: PSEUDOMONAS INFECTION
     Dosage: 1 MU, BID
     Dates: start: 200603
  9. DEOXYRIBONUCLEASE HUMAN [Concomitant]
     Indication: CYSTIC FIBROSIS LUNG
     Dosage: 2.5 MG, QD
     Dates: start: 201201
  10. SYMBICORT [Concomitant]
     Active Substance: BUDESONIDE\FORMOTEROL FUMARATE DIHYDRATE
     Indication: CYSTIC FIBROSIS LUNG
     Dosage: 2 PUFFS, BID
     Dates: start: 200310
  11. PLACEBO [Suspect]
     Active Substance: UNSPECIFIED INGREDIENT
     Indication: CYSTIC FIBROSIS
     Dosage: 100 MG QD, 150 MG, BID, 150 MG, BID
     Route: 048
     Dates: end: 20200306
  12. CETRIZINE [Concomitant]
     Active Substance: CETIRIZINE HYDROCHLORIDE
     Dosage: 10 MG OD, PRN
  13. IBUPROFEN. [Concomitant]
     Active Substance: IBUPROFEN
     Indication: ARTHRALGIA
     Dosage: 200 MG, PRN
     Route: 048
     Dates: start: 2004
  14. CREON [Concomitant]
     Active Substance: PANCRELIPASE AMYLASE\PANCRELIPASE LIPASE\PANCRELIPASE PROTEASE
     Indication: PANCREATIC FAILURE
     Dosage: 50 DOSAGE FORM (VARIABLE), PRN
     Route: 048
     Dates: start: 19940617
  15. PARACETAMOL [Concomitant]
     Active Substance: ACETAMINOPHEN
     Indication: ARTHRALGIA
     Dosage: 1 G, PRN
     Route: 048
     Dates: start: 2004
  16. GAVISCON ADVANCE [SODIUM ALGINATE] [Concomitant]
     Indication: GASTROOESOPHAGEAL REFLUX DISEASE
     Dosage: 2 DOSAGE FORM, PRN
     Route: 048
     Dates: start: 2016
  17. OMEPRAZOLE. [Concomitant]
     Active Substance: OMEPRAZOLE
     Indication: GASTROOESOPHAGEAL REFLUX DISEASE
     Dosage: 40 MG, QD
     Route: 048
     Dates: start: 2016
  18. VITAMIN K [PHYTOMENADIONE] [Concomitant]
     Indication: PANCREATIC FAILURE
     Dosage: 10 MG, QD
     Route: 048
     Dates: start: 19940617
  19. MOVICOLON [Concomitant]
     Active Substance: POLYETHYLENE GLYCOL 3350\POTASSIUM CHLORIDE\SODIUM BICARBONATE\SODIUM CHLORIDE
     Indication: CONSTIPATION
     Dosage: UNK
     Dates: start: 20200410
  20. DOMPERIDONE [DOMPERIDONE MALEATE] [Concomitant]
     Indication: GASTROOESOPHAGEAL REFLUX DISEASE
     Dosage: UNK
     Dates: start: 20200510

REACTIONS (2)
  - Anxiety [Recovered/Resolved]
  - Depression [Recovered/Resolved]

NARRATIVE: CASE EVENT DATE: 20200306
